FAERS Safety Report 15489746 (Version 1)
Quarter: 2018Q4

REPORT INFORMATION
  Report Type: Spontaneous
  Country: US (occurrence: US)
  Receive Date: 20181011
  Receipt Date: 20181011
  Transmission Date: 20190205
  Serious: No
  Sender: FDA-Public Use
  Company Number: US-ALLERGAN-1769378US

PATIENT
  Age: 47 Year
  Sex: Male

DRUGS (2)
  1. COMBIGAN [Suspect]
     Active Substance: BRIMONIDINE TARTRATE\TIMOLOL MALEATE
     Indication: HALO VISION
     Dosage: UNK, PRN
     Route: 047
  2. COMBIGAN [Suspect]
     Active Substance: BRIMONIDINE TARTRATE\TIMOLOL MALEATE
     Dosage: UNK, PRN
     Route: 047

REACTIONS (4)
  - Visual impairment [Recovering/Resolving]
  - Inappropriate schedule of product administration [Unknown]
  - Expired product administered [Unknown]
  - Off label use [Unknown]
